FAERS Safety Report 5188836-3 (Version None)
Quarter: 2006Q4

REPORT INFORMATION
  Report Type: 
  Country: None (occurrence: None)
  Receive Date: 20061215
  Receipt Date: 20061204
  Transmission Date: 20070319
  Serious: Yes (Death)
  Sender: FDA-Public Use
  Company Number: 200611IM000656

PATIENT
  Age: 73 Year
  Sex: Male
  Weight: 130.1823 kg

DRUGS (23)
  1. ACTIMMUNE [Suspect]
  2. NOVOLIN 50/50 [Suspect]
  3. DIGOXIN [Concomitant]
  4. COREG [Concomitant]
  5. COZAAR [Concomitant]
  6. ZOCOR [Concomitant]
  7. ASPIRIN [Concomitant]
  8. MAGNESIUM CHLORIDE [Concomitant]
  9. TRAZODONE HCL [Concomitant]
  10. NEURONTIN [Concomitant]
  11. ALBUTEROL [Concomitant]
  12. ATIVAN [Concomitant]
  13. ADVAIR DISKUS 100/50 [Concomitant]
  14. NEXIUM [Concomitant]
  15. NOVOLOG [Concomitant]
  16. MIRAPEX [Concomitant]
  17. LANTUS [Concomitant]
  18. PAXIL [Concomitant]
  19. NIACIN [Concomitant]
  20. LASIX [Concomitant]
  21. COLACE [Concomitant]
  22. PREVACID [Concomitant]
  23. ATROVENT [Concomitant]

REACTIONS (2)
  - LOSS OF CONSCIOUSNESS [None]
  - MALAISE [None]
